FAERS Safety Report 9558194 (Version 1)
Quarter: 2013Q3

REPORT INFORMATION
  Report Type: Spontaneous
  Country: PT (occurrence: PT)
  Receive Date: 20130926
  Receipt Date: 20130926
  Transmission Date: 20140515
  Serious: Yes (Other)
  Sender: FDA-Public Use
  Company Number: PT-PFIZER INC-2013272456

PATIENT
  Age: 53 Year
  Sex: Male

DRUGS (4)
  1. DOXYCYCLINE HYCLATE [Suspect]
     Indication: PLASMODIUM FALCIPARUM INFECTION
     Dosage: UNK
     Route: 048
  2. DOXYCYCLINE HYCLATE [Suspect]
     Indication: PLASMODIUM FALCIPARUM INFECTION
     Route: 042
  3. QUININE SULPHATE [Suspect]
     Indication: PLASMODIUM FALCIPARUM INFECTION
     Dosage: UNK
     Route: 048
  4. QUININE SULPHATE [Suspect]
     Indication: PLASMODIUM FALCIPARUM INFECTION
     Route: 042

REACTIONS (3)
  - Respiratory failure [Unknown]
  - Vomiting [Unknown]
  - Drug intolerance [Unknown]
